FAERS Safety Report 17864655 (Version 1)
Quarter: 2020Q2

REPORT INFORMATION
  Report Type: Spontaneous
  Country: PK (occurrence: PK)
  Receive Date: 20200605
  Receipt Date: 20200605
  Transmission Date: 20200714
  Serious: No
  Sender: FDA-Public Use
  Company Number: None

PATIENT
  Age: 25 Year
  Sex: Female
  Weight: 58 kg

DRUGS (1)
  1. INFLAMATIX SR (FLURBIPROFEN) 200MG CAPSULE . [Suspect]
     Active Substance: FLURBIPROFEN
     Indication: OROPHARYNGEAL DISCOMFORT
     Dosage: ?          QUANTITY:1 CAPSULE(S);?
     Route: 048
     Dates: start: 20200604, end: 20200605

REACTIONS (3)
  - Adnexa uteri pain [None]
  - Uterine pain [None]
  - Pollakiuria [None]

NARRATIVE: CASE EVENT DATE: 20200604
